FAERS Safety Report 24922471 (Version 2)
Quarter: 2025Q1

REPORT INFORMATION
  Report Type: Spontaneous
  Country: NL (occurrence: NL)
  Receive Date: 20250204
  Receipt Date: 20250207
  Transmission Date: 20250408
  Serious: Yes (Death, Hospitalization, Other)
  Sender: ASTELLAS
  Company Number: NL-GILEAD-2025-0701875

PATIENT
  Age: 69 Year
  Sex: Male

DRUGS (8)
  1. AMBISOME [Suspect]
     Active Substance: AMPHOTERICIN B
     Indication: Bronchopulmonary aspergillosis
     Dosage: 3 MG/KG 1/DAY
     Route: 042
  2. MEROPENEM [Concomitant]
     Active Substance: MEROPENEM
     Indication: Product used for unknown indication
     Route: 065
  3. MICAFUNGIN [Concomitant]
     Active Substance: MICAFUNGIN SODIUM
     Indication: Lung disorder
     Route: 065
  4. GANCICLOVIR [Concomitant]
     Active Substance: GANCICLOVIR
     Indication: Product used for unknown indication
     Route: 065
  5. COTRIMOXAZOLE [Concomitant]
     Active Substance: SULFAMETHOXAZOLE\TRIMETHOPRIM
     Indication: Pneumocystis jirovecii pneumonia
     Route: 065
  6. CEFTRIAXONE [Concomitant]
     Active Substance: CEFTRIAXONE
     Indication: Product used for unknown indication
     Route: 065
  7. AMOXICILLIN [Concomitant]
     Active Substance: AMOXICILLIN
     Indication: Product used for unknown indication
     Route: 065
  8. ISAVUCONAZOLE [Concomitant]
     Active Substance: ISAVUCONAZOLE
     Indication: Product used for unknown indication
     Route: 065

REACTIONS (12)
  - Sepsis [Fatal]
  - Multiple organ dysfunction syndrome [Fatal]
  - Respiratory failure [Unknown]
  - Apallic syndrome [Unknown]
  - Haemorrhage intracranial [Unknown]
  - Cerebral venous sinus thrombosis [Unknown]
  - Renal impairment [Unknown]
  - Autoimmune hepatitis [Unknown]
  - Cytomegalovirus infection reactivation [Unknown]
  - Listeria sepsis [Unknown]
  - Meningococcal sepsis [Unknown]
  - Drug ineffective [Unknown]
